FAERS Safety Report 6584961-0 (Version None)
Quarter: 2010Q1

REPORT INFORMATION
  Report Type: 
  Country: None (occurrence: None)
  Receive Date: 20100217
  Receipt Date: 20100212
  Transmission Date: 20100710
  Serious: Yes (Death, Hospitalization)
  Sender: FDA-Public Use
  Company Number: GB-BAYER-200823774GPV

PATIENT
  Age: 65 Year
  Sex: Male

DRUGS (10)
  1. NAPROXEN [Suspect]
     Indication: GOUT
     Route: 065
     Dates: start: 20071117
  2. GEMZAR [Suspect]
     Indication: NON-SMALL CELL LUNG CANCER
     Dosage: TOTAL DAILY DOES 2470 MG
     Route: 065
     Dates: start: 20071120, end: 20071120
  3. CO-CODAMOL [Concomitant]
     Indication: DRUG USE FOR UNKNOWN INDICATION
     Route: 065
  4. CARBOPLATIN [Concomitant]
     Indication: DRUG USE FOR UNKNOWN INDICATION
     Route: 065
  5. FLUTICASONE PROPIONATE [Concomitant]
     Indication: DRUG USE FOR UNKNOWN INDICATION
     Route: 065
  6. SALMETEROL XINAFOATE [Concomitant]
     Indication: DRUG USE FOR UNKNOWN INDICATION
     Route: 065
  7. ALBUTEROL [Concomitant]
     Indication: DRUG USE FOR UNKNOWN INDICATION
     Route: 065
  8. OMEPRAZOLE [Concomitant]
     Indication: DRUG USE FOR UNKNOWN INDICATION
     Route: 065
  9. GABAPENTIN [Concomitant]
     Indication: DRUG USE FOR UNKNOWN INDICATION
     Route: 065
  10. IPRATROPIUM BROMIDE [Concomitant]
     Indication: DRUG USE FOR UNKNOWN INDICATION
     Route: 065

REACTIONS (14)
  - ALOPECIA [None]
  - BONE MARROW FAILURE [None]
  - CELLULITIS [None]
  - COUGH [None]
  - DYSPNOEA [None]
  - HYPERHIDROSIS [None]
  - LUNG SQUAMOUS CELL CARCINOMA STAGE UNSPECIFIED [None]
  - MUCOSAL INFLAMMATION [None]
  - MULTI-ORGAN FAILURE [None]
  - NEUTROPENIC SEPSIS [None]
  - PULMONARY OEDEMA [None]
  - RASH ERYTHEMATOUS [None]
  - RENAL FAILURE ACUTE [None]
  - SEPSIS [None]
